FAERS Safety Report 13768872 (Version 3)
Quarter: 2017Q3

REPORT INFORMATION
  Report Type: Report from Study
  Country: US (occurrence: US)
  Receive Date: 20170719
  Receipt Date: 20170926
  Transmission Date: 20171127
  Serious: No
  Sender: FDA-Public Use
  Company Number: PHEH2017US022010

PATIENT
  Age: 60 Year
  Sex: Female

DRUGS (2)
  1. MYFORTIC [Suspect]
     Active Substance: MYCOPHENOLATE SODIUM
     Indication: RENAL TRANSPLANT
     Dosage: 180 MG, BID
     Route: 048
  2. PROGRAF [Suspect]
     Active Substance: TACROLIMUS\TACROLIMUS ANHYDROUS
     Indication: RENAL TRANSPLANT
     Dosage: UNK UNK, BID
     Route: 048
     Dates: start: 20170506, end: 20170518

REACTIONS (6)
  - Tremor [Recovered/Resolved]
  - Blood pressure increased [Unknown]
  - Pharyngitis streptococcal [Recovering/Resolving]
  - Stress [Unknown]
  - Heart rate decreased [Unknown]
  - Malaise [Unknown]

NARRATIVE: CASE EVENT DATE: 20170514
